FAERS Safety Report 23068580 (Version 1)
Quarter: 2023Q4

REPORT INFORMATION
  Report Type: Spontaneous
  Country: US (occurrence: US)
  Receive Date: 20231016
  Receipt Date: 20231016
  Transmission Date: 20240109
  Serious: No
  Sender: FDA-Public Use
  Company Number: US-SA-SAC20231010000247

PATIENT
  Sex: Female

DRUGS (3)
  1. DUPIXENT [Suspect]
     Active Substance: DUPILUMAB
     Indication: Product used for unknown indication
     Dosage: 200 MG, QM
     Route: 058
     Dates: start: 20220907
  2. CLARITIN [Concomitant]
     Active Substance: LORATADINE
     Dosage: CLARITIN 5 MG/5 ML SOLUTION
  3. EPIPEN [Concomitant]
     Active Substance: EPINEPHRINE
     Dosage: EPIPEN 0.3MG/0.3 AUTO INJCT

REACTIONS (1)
  - Condition aggravated [Unknown]
